FAERS Safety Report 9779885 (Version 1)
Quarter: 2013Q4

REPORT INFORMATION
  Report Type: Report from Study
  Country: DE (occurrence: DE)
  Receive Date: 20131223
  Receipt Date: 20131223
  Transmission Date: 20140711
  Serious: Yes (Death)
  Sender: FDA-Public Use
  Company Number: GXKR2013DE003823

PATIENT
  Age: 78 Year
  Sex: Male
  Weight: 72 kg

DRUGS (3)
  1. DOCETAXEL [Suspect]
     Indication: PROSTATE CANCER
     Dosage: 75 MG/M2; Q3W REGIMEN
     Route: 042
     Dates: start: 20130114, end: 20131125
  2. DEXAMETHASONE [Concomitant]
     Dosage: 8 MG, Q3W REGIMEN
     Route: 042
     Dates: start: 20110214, end: 20131125
  3. NAVOBAN [Concomitant]
     Dosage: 2 MG, Q3W REGIMEN
     Route: 042
     Dates: start: 20110214, end: 20131125

REACTIONS (1)
  - Death [Fatal]
